FAERS Safety Report 8361890-3 (Version None)
Quarter: 2012Q2

REPORT INFORMATION
  Report Type: 
  Country: None (occurrence: None)
  Receive Date: 20120514
  Receipt Date: 20120509
  Transmission Date: 20120825
  Serious: Yes (Life-Threatening)
  Sender: FDA-Public Use
  Company Number: 2012SP024677

PATIENT
  Age: 64 Year
  Sex: Male

DRUGS (3)
  1. REBETOL [Suspect]
     Indication: PRODUCT USED FOR UNKNOWN INDICATION
     Dosage: 800 MG;QD;PO
     Route: 048
     Dates: start: 20120410, end: 20120412
  2. TELAVIC (ANTIVIRALS NOS) [Suspect]
     Indication: PRODUCT USED FOR UNKNOWN INDICATION
     Dosage: 2250 MG;QD;PO
     Route: 048
     Dates: start: 20120410, end: 20120416
  3. PEGINTERFERON ALFA-2B [Suspect]
     Indication: PRODUCT USED FOR UNKNOWN INDICATION
     Dosage: 1.5 MCG/KG;QW;SC
     Route: 058
     Dates: start: 20120410

REACTIONS (1)
  - GENERAL PHYSICAL HEALTH DETERIORATION [None]
